FAERS Safety Report 9460451 (Version 2)
Quarter: 2015Q2

REPORT INFORMATION
  Report Type: Spontaneous
  Country: CA (occurrence: CA)
  Receive Date: 20130815
  Receipt Date: 20150429
  Transmission Date: 20150821
  Serious: Yes (Hospitalization)
  Sender: FDA-Public Use
  Company Number: PHHY2013CA084660

PATIENT
  Age: 5 Year
  Sex: Male

DRUGS (3)
  1. ISONIAZID. [Suspect]
     Active Substance: ISONIAZID
     Indication: TUBERCULOSIS
  2. PYRIDOXINE [Concomitant]
     Active Substance: PYRIDOXINE
     Indication: TUBERCULOSIS
     Dosage: 12.5 MG, QD
     Route: 065
  3. ISONIAZID. [Suspect]
     Active Substance: ISONIAZID
     Indication: PULMONARY TUBERCULOSIS
     Dosage: 200 MG, QD (11 MG/KG DAILY)
     Route: 065

REACTIONS (8)
  - Hepatitis acute [Unknown]
  - Hepatotoxicity [Recovering/Resolving]
  - Abdominal pain [Unknown]
  - Vomiting [Unknown]
  - Hepatic failure [Unknown]
  - Hepatic encephalopathy [Unknown]
  - Jaundice [Unknown]
  - Hepatic cirrhosis [Unknown]
